FAERS Safety Report 5829465-5 (Version None)
Quarter: 2008Q3

REPORT INFORMATION
  Report Type: 
  Country: None (occurrence: None)
  Receive Date: 20080729
  Receipt Date: 20080715
  Transmission Date: 20090109
  Serious: Yes (Other)
  Sender: FDA-Public Use
  Company Number: 2008US000757

PATIENT
  Age: 56 Year
  Sex: Female
  Weight: 66.5 kg

DRUGS (7)
  1. PROGRAF [Suspect]
     Indication: RENAL AND PANCREAS TRANSPLANT
     Dosage: 1 MG, BID; 0.5 MG, BID, ORAL
     Route: 048
     Dates: start: 20040730
  2. PREDNISONE [Concomitant]
  3. LEVOXYL [Concomitant]
  4. CYTOMEL [Concomitant]
  5. LASIX [Concomitant]
  6. TORSEMIDE [Concomitant]
  7. NAMENDA [Concomitant]

REACTIONS (6)
  - CARDIAC HYPERTROPHY [None]
  - HEPATIC ENZYME INCREASED [None]
  - ILL-DEFINED DISORDER [None]
  - OEDEMA PERIPHERAL [None]
  - PORTAL VEIN PRESSURE INCREASED [None]
  - PULMONARY ARTERIAL HYPERTENSION [None]
